FAERS Safety Report 6725947-2 (Version None)
Quarter: 2010Q2

REPORT INFORMATION
  Report Type: 
  Country: None (occurrence: None)
  Receive Date: 20100512
  Receipt Date: 20100503
  Transmission Date: 20101027
  Serious: Yes (Hospitalization)
  Sender: FDA-Public Use
  Company Number: 1000013443

PATIENT
  Sex: Male

DRUGS (1)
  1. MEMANTINE [Suspect]
     Indication: DEMENTIA
     Dosage: 200 MG, ONCE, ORAL
     Route: 048
     Dates: start: 20100412, end: 20100412

REACTIONS (2)
  - ACCIDENTAL OVERDOSE [None]
  - DEVICE INFORMATION OUTPUT ISSUE [None]
